FAERS Safety Report 6732707-5 (Version None)
Quarter: 2010Q2

REPORT INFORMATION
  Report Type: 
  Country: None (occurrence: None)
  Receive Date: 20100514
  Receipt Date: 20100429
  Transmission Date: 20101027
  Serious: Yes (Other)
  Sender: FDA-Public Use
  Company Number: TUK2008A00067

PATIENT
  Age: 60 Year
  Sex: Female

DRUGS (12)
  1. ACTOS [Suspect]
     Indication: DIABETES MELLITUS
     Dosage: (45 MG) ORAL
     Route: 048
     Dates: start: 20080109
  2. ROSIGLITAZONE [Suspect]
     Indication: DIABETES MELLITUS
     Dosage: (8 MG) ORAL
     Route: 048
     Dates: start: 20070501, end: 20071106
  3. AMLODIPINE [Concomitant]
  4. ASPIRIN [Concomitant]
  5. CALCICHEW D3 (COLECALCIFEROL, CALCIUM CARBONATE) [Concomitant]
  6. CODEINE PHOSPHATE AND ACETAMINOPHEN [Concomitant]
  7. GLICLAZIDE (GLICLAZIDE) [Concomitant]
  8. METFORMIN HCL [Concomitant]
  9. MODECATE (FLUPHENAZINE DECANOATE) [Concomitant]
  10. PROCYCLIDINE HYDROCHLORIDE 2MG TAB [Concomitant]
  11. SIMVASTATIN [Concomitant]
  12. BENDROFLUAZIDE (BENDROFLUMETHIAZIDE) [Concomitant]

REACTIONS (4)
  - FALL [None]
  - FOOT FRACTURE [None]
  - MULTIPLE FRACTURES [None]
  - WRIST FRACTURE [None]
